FAERS Safety Report 5547466-1 (Version None)
Quarter: 2007Q4

REPORT INFORMATION
  Report Type: 
  Country: None (occurrence: None)
  Receive Date: 20071126
  Receipt Date: 20070406
  Transmission Date: 20080405
  Serious: Yes (Other)
  Sender: FDA-Public Use
  Company Number: 2007BH003293

PATIENT
  Age: 55 Year
  Sex: Male
  Weight: 71.81 kg

DRUGS (4)
  1. DIANEAL [Suspect]
     Indication: BEHCET'S SYNDROME
     Dosage: 2.5 L; IP
     Route: 033
     Dates: start: 20050418
  2. DIANEAL [Suspect]
     Indication: RENAL FAILURE CHRONIC
     Dosage: 2.5 L; IP
     Route: 033
     Dates: start: 20050418
  3. DIANEAL [Suspect]
     Indication: BEHCET'S SYNDROME
     Dosage: 2.5 L; IP
     Route: 033
     Dates: start: 20050418
  4. DIANEAL [Suspect]
     Indication: RENAL FAILURE CHRONIC
     Dosage: 2.5 L; IP
     Route: 033
     Dates: start: 20050418

REACTIONS (2)
  - DEVICE LEAKAGE [None]
  - PERITONITIS BACTERIAL [None]
